FAERS Safety Report 7540697-0 (Version None)
Quarter: 2011Q2

REPORT INFORMATION
  Report Type: 
  Country: None (occurrence: None)
  Receive Date: 20110610
  Receipt Date: 20110610
  Transmission Date: 20111010
  Serious: Yes (Hospitalization, Other)
  Sender: FDA-Public Use
  Company Number: US-PFIZER INC-HQ2065225APR2002

PATIENT
  Age: 19 Year
  Sex: Female

DRUGS (5)
  1. IBUPROFEN [Suspect]
     Indication: HEADACHE
     Route: 048
  2. METOCLOPRAMIDE HYDROCHLORIDE [Suspect]
     Indication: HEADACHE
     Route: 048
  3. CIPROFLOXACIN [Suspect]
     Route: 042
  4. CEFTRIAXONE AND DEXTROSE IN DUPLEX CONTAINER [Suspect]
     Route: 048
  5. KETOROLAC TROMETHAMINE [Suspect]
     Route: 048

REACTIONS (3)
  - STEVENS-JOHNSON SYNDROME [None]
  - DRUG INEFFECTIVE [None]
  - HEPATITIS CHOLESTATIC [None]
